FAERS Safety Report 21618053 (Version 2)
Quarter: 2022Q4

REPORT INFORMATION
  Report Type: Report from Study
  Country: US (occurrence: US)
  Receive Date: 20221119
  Receipt Date: 20221130
  Transmission Date: 20230112
  Serious: Yes (Other)
  Sender: FDA-Public Use
  Company Number: US-ABBVIE-4205814

PATIENT
  Sex: Female

DRUGS (2)
  1. IMBRUVICA [Suspect]
     Active Substance: IBRUTINIB
     Indication: Non-Hodgkin^s lymphoma
     Route: 048
     Dates: start: 202207
  2. IMBRUVICA [Suspect]
     Active Substance: IBRUTINIB
     Indication: Non-Hodgkin^s lymphoma
     Route: 048
     Dates: start: 20220804

REACTIONS (7)
  - Spinal operation [Unknown]
  - Erythema [Not Recovered/Not Resolved]
  - Musculoskeletal chest pain [Unknown]
  - Dry skin [Unknown]
  - Fall [Unknown]
  - Paraesthesia [Unknown]
  - Skin exfoliation [Not Recovered/Not Resolved]
